FAERS Safety Report 4736375-3 (Version None)
Quarter: 2005Q3

REPORT INFORMATION
  Report Type: 
  Country: None (occurrence: None)
  Receive Date: 20050804
  Receipt Date: 20050721
  Transmission Date: 20060218
  Serious: Yes (Hospitalization)
  Sender: FDA-Public Use
  Company Number: 200507IM000331

PATIENT
  Age: 57 Year
  Sex: Female
  Weight: 95.2554 kg

DRUGS (3)
  1. INFERGEN [Suspect]
     Indication: HEPATITIS C
     Dosage: 15 UG;QD; SUBCUTANEOUS
     Route: 058
     Dates: start: 20041203, end: 20050706
  2. CLONIDINE [Concomitant]
  3. PROGRAF [Concomitant]

REACTIONS (6)
  - ALOPECIA [None]
  - BLOOD GLUCOSE INCREASED [None]
  - BLOOD URINE PRESENT [None]
  - HEADACHE [None]
  - NEPHROLITHIASIS [None]
  - PLATELET COUNT DECREASED [None]
